FAERS Safety Report 9472325 (Version 5)
Quarter: 2013Q3

REPORT INFORMATION
  Report Type: Spontaneous
  Country: US (occurrence: US)
  Receive Date: 20130823
  Receipt Date: 20130913
  Transmission Date: 20140515
  Serious: Yes (Hospitalization)
  Sender: FDA-Public Use
  Company Number: US-JNJFOC-20130810419

PATIENT
  Age: 47 Year
  Sex: Female

DRUGS (3)
  1. XARELTO [Suspect]
     Indication: HYPERCOAGULATION
     Route: 048
  2. XARELTO [Suspect]
     Indication: THROMBOSIS PROPHYLAXIS
     Route: 048
  3. ZITHROMYCIN [Concomitant]
     Route: 065

REACTIONS (4)
  - Retroperitoneal haemorrhage [Unknown]
  - Gastric haemorrhage [Unknown]
  - Pulmonary embolism [Recovering/Resolving]
  - Deep vein thrombosis [Recovering/Resolving]
